FAERS Safety Report 9633060 (Version 1)
Quarter: 2013Q4

REPORT INFORMATION
  Report Type: Spontaneous
  Country: US (occurrence: US)
  Receive Date: 20131018
  Receipt Date: 20131018
  Transmission Date: 20140711
  Serious: Yes (Other)
  Sender: FDA-Public Use
  Company Number: US-ASTRAZENECA-2013SE56942

PATIENT
  Age: 55 Year
  Sex: Female
  Weight: 49.9 kg

DRUGS (2)
  1. ARIMIDEX [Suspect]
     Indication: NEOPLASM MALIGNANT
     Route: 048
     Dates: start: 201210
  2. ZOMETA [Concomitant]
     Dosage: ONCE MONTHLY
     Route: 042

REACTIONS (5)
  - Malignant neoplasm progression [Unknown]
  - Carbohydrate antigen 15-3 increased [Unknown]
  - Carcinoembryonic antigen increased [Unknown]
  - Anxiety [Unknown]
  - Intentional drug misuse [Unknown]
